FAERS Safety Report 15799659 (Version 2)
Quarter: 2020Q2

REPORT INFORMATION
  Report Type: Report from Study
  Country: US (occurrence: US)
  Receive Date: 20190108
  Receipt Date: 20200417
  Transmission Date: 20200713
  Serious: Yes (Other)
  Sender: FDA-Public Use
  Company Number: US-BAYER-2019-005209

PATIENT
  Sex: Male

DRUGS (2)
  1. ASPIRIN 81 MG [Suspect]
     Active Substance: ASPIRIN
     Indication: ANTICOAGULANT THERAPY
     Dosage: UNK
  2. ASPIRIN 81 MG [Suspect]
     Active Substance: ASPIRIN
     Indication: PENILE PROSTHESIS INSERTION

REACTIONS (3)
  - Off label use [None]
  - Product use in unapproved indication [None]
  - Haematoma [Recovering/Resolving]
